FAERS Safety Report 4959110-2 (Version None)
Quarter: 2006Q1

REPORT INFORMATION
  Report Type: 
  Country: None (occurrence: None)
  Receive Date: 20060330
  Receipt Date: 20060330
  Transmission Date: 20060701
  Serious: No
  Sender: FDA-Public Use
  Company Number: None

PATIENT
  Sex: Female
  Weight: 77.1115 kg

DRUGS (2)
  1. ALBUTEROL [Suspect]
     Indication: ASTHMA
     Dosage: AS NEEDED NOT TO EXCEED 4 TIMES DAILY
  2. ALBUTEROL [Suspect]
     Indication: ASTHMA
     Dosage: AS NEEDED NOT TO EXCEED 4 TIMES DAILY

REACTIONS (3)
  - PHARMACEUTICAL PRODUCT COMPLAINT [None]
  - STOMATITIS [None]
  - SWOLLEN TONGUE [None]
